FAERS Safety Report 20211757 (Version 1)
Quarter: 2021Q4

REPORT INFORMATION
  Report Type: Spontaneous
  Country: US (occurrence: None)
  Receive Date: 20211221
  Receipt Date: 20211221
  Transmission Date: 20220303
  Serious: No
  Sender: FDA-Public Use
  Company Number: None

PATIENT
  Age: 11 Month
  Sex: Female
  Weight: 9 kg

DRUGS (1)
  1. MONTELUKAST SODIUM [Suspect]
     Active Substance: MONTELUKAST SODIUM
     Indication: Ear infection
     Dosage: OTHER QUANTITY : 1 PACKET;?FREQUENCY : DAILY;?
     Route: 048
     Dates: start: 20211218, end: 20211220

REACTIONS (3)
  - Vomiting [None]
  - Tremor [None]
  - Screaming [None]

NARRATIVE: CASE EVENT DATE: 20211220
